FAERS Safety Report 15996900 (Version 1)
Quarter: 2019Q1

REPORT INFORMATION
  Report Type: Spontaneous
  Country: US (occurrence: US)
  Receive Date: 20190222
  Receipt Date: 20190222
  Transmission Date: 20190418
  Serious: Yes (Other)
  Sender: FDA-Public Use
  Company Number: None

PATIENT
  Age: 75 Year
  Sex: Male
  Weight: 74.25 kg

DRUGS (1)
  1. IOHEXOL (OMNIPAQUE-350) IV [Suspect]
     Active Substance: IOHEXOL
     Indication: ANGIOGRAM
     Dates: start: 20190215, end: 20190215

REACTIONS (1)
  - Visual impairment [None]

NARRATIVE: CASE EVENT DATE: 20190215
